FAERS Safety Report 6497775-7 (Version None)
Quarter: 2009Q4

REPORT INFORMATION
  Report Type: 
  Country: None (occurrence: None)
  Receive Date: 20091215
  Receipt Date: 20091207
  Transmission Date: 20100525
  Serious: Yes (Death, Hospitalization)
  Sender: FDA-Public Use
  Company Number: US-KINGPHARMUSA00001-K200901057

PATIENT
  Age: 68 Year
  Sex: Male

DRUGS (6)
  1. ALTACE [Suspect]
     Indication: HYPERTENSION
     Dosage: 10 MG, QD
     Route: 048
     Dates: start: 20020101, end: 20090809
  2. SIMVASTATIN [Suspect]
     Indication: DYSLIPIDAEMIA
     Dosage: 20 MG, QD
     Route: 048
     Dates: start: 20090101, end: 20090701
  3. ACETYLSALICYLIC ACID [Suspect]
     Indication: CORONARY ARTERY DISEASE
     Dosage: 100 MG, QD
     Route: 048
     Dates: start: 20010101, end: 20090806
  4. PREDNISOLONE [Suspect]
     Indication: DIARRHOEA
     Dosage: 10 MG, QD
     Route: 048
     Dates: start: 20060101, end: 20090809
  5. ANTIOXIDANT [Suspect]
     Indication: IMMUNE ENHANCEMENT THERAPY
     Dosage: 1 DF, QD
     Route: 048
     Dates: start: 20090729, end: 20090805
  6. TAMSULOSIN [Concomitant]
     Indication: BENIGN PROSTATIC HYPERPLASIA
     Dosage: 1 DF, UNK
     Route: 048
     Dates: end: 20090601

REACTIONS (17)
  - ACUTE HEPATIC FAILURE [None]
  - ASTHENIA [None]
  - COAGULOPATHY [None]
  - COMA [None]
  - CROHN'S DISEASE [None]
  - DIALYSIS [None]
  - DISORIENTATION [None]
  - DYSLIPIDAEMIA [None]
  - GENERAL PHYSICAL HEALTH DETERIORATION [None]
  - HEPATIC ENCEPHALOPATHY [None]
  - HEPATIC HAEMORRHAGE [None]
  - HEPATIC NECROSIS [None]
  - JAUNDICE [None]
  - MYOCARDIAL INFARCTION [None]
  - OLIGURIA [None]
  - PROCEDURAL COMPLICATION [None]
  - SOMNOLENCE [None]
